FAERS Safety Report 9271874 (Version 1)
Quarter: 2013Q2

REPORT INFORMATION
  Report Type: Spontaneous
  Country: US (occurrence: US)
  Receive Date: 20130506
  Receipt Date: 20130506
  Transmission Date: 20140414
  Serious: Yes (Hospitalization)
  Sender: FDA-Public Use
  Company Number: US-CELGENEUS-163-21880-13050039

PATIENT
  Sex: Male

DRUGS (1)
  1. REVLIMID [Suspect]
     Indication: PLASMA CELL LEUKAEMIA
     Dosage: 5 MILLIGRAM
     Route: 048
     Dates: start: 201209

REACTIONS (1)
  - Gallbladder disorder [Unknown]
